FAERS Safety Report 7634437-4 (Version None)
Quarter: 2011Q3

REPORT INFORMATION
  Report Type: 
  Country: None (occurrence: None)
  Receive Date: 20110725
  Receipt Date: 20110711
  Transmission Date: 20111222
  Serious: Yes (Hospitalization, Other)
  Sender: FDA-Public Use
  Company Number: PHHY2011FR64746

PATIENT
  Age: 54 Year
  Sex: Female

DRUGS (7)
  1. DIHYDROERGOTAMINE MESYLATE [Suspect]
     Dosage: 3 DF, UNK
     Route: 048
     Dates: end: 19950518
  2. VOLTAREN [Suspect]
     Dosage: 1 DF, QD
     Route: 048
     Dates: end: 19950518
  3. ALDACTAZIDE [Suspect]
     Indication: ESSENTIAL HYPERTENSION
     Dosage: HALF FILMED TABLET DAILY
     Dates: end: 19950518
  4. VEINAMITOL [Concomitant]
     Dosage: UNK UKN, UNK
     Dates: end: 19950521
  5. PIASCLEDINE [Concomitant]
     Dosage: UNK UKN, UNK
     Dates: end: 19950521
  6. NOCTAMID [Concomitant]
     Dosage: 1 MG, UNK
  7. PROPRANOLOL [Suspect]
     Indication: ESSENTIAL HYPERTENSION
     Dosage: 1 DF, QD
     Route: 048
     Dates: end: 19950518

REACTIONS (8)
  - RENAL FAILURE ACUTE [None]
  - MEDIASTINAL FIBROSIS [None]
  - ASCITES [None]
  - BLOOD CREATININE INCREASED [None]
  - RETROPERITONEAL FIBROSIS [None]
  - HYDRONEPHROSIS [None]
  - IDIOPATHIC PULMONARY FIBROSIS [None]
  - PERICARDIAL EFFUSION [None]
